FAERS Safety Report 23931836 (Version 1)
Quarter: 2024Q2

REPORT INFORMATION
  Report Type: Other
  Country: FR (occurrence: FR)
  Receive Date: 20240603
  Receipt Date: 20240603
  Transmission Date: 20240716
  Serious: Yes (Hospitalization)
  Sender: FDA-Public Use
  Company Number: None

PATIENT

DRUGS (3)
  1. PREGABALIN [Suspect]
     Active Substance: PREGABALIN
     Indication: Gout
     Dosage: 1 DOSAGE FORM
     Route: 048
     Dates: start: 20220310, end: 20220323
  2. ALLOPURINOL [Suspect]
     Active Substance: ALLOPURINOL
     Indication: Gout
     Dosage: 1 DOSAGE FORM
     Route: 048
     Dates: start: 20220310, end: 20220323
  3. COLCHICINE\DICYCLOMINE HYDROCHLORIDE [Suspect]
     Active Substance: COLCHICINE\DICYCLOMINE HYDROCHLORIDE
     Indication: Gout
     Dosage: 1 DOSAGE FORM
     Route: 048
     Dates: start: 20220310, end: 20220323

REACTIONS (1)
  - Drug reaction with eosinophilia and systemic symptoms [Recovered/Resolved]

NARRATIVE: CASE EVENT DATE: 20220312
